FAERS Safety Report 23354890 (Version 1)
Quarter: 2024Q1

REPORT INFORMATION
  Report Type: Spontaneous
  Country: US (occurrence: US)
  Receive Date: 20240101
  Receipt Date: 20240101
  Transmission Date: 20240409
  Serious: Yes (Hospitalization)
  Sender: FDA-Public Use
  Company Number: US-PRINSTON PHARMACEUTICAL INC.-2023PRN00641

PATIENT
  Age: 32 Year

DRUGS (3)
  1. BUPROPION [Suspect]
     Active Substance: BUPROPION
     Dosage: INITIAL UNKNOWN REGIMEN
  2. BUPROPION [Suspect]
     Active Substance: BUPROPION
     Dosage: OVERDOSE
  3. ANTI-RETROVIRAL THERAPY [Concomitant]
     Indication: HIV infection

REACTIONS (5)
  - Electrocardiogram QT prolonged [Recovered/Resolved]
  - Ventricular tachycardia [Recovered/Resolved]
  - Overdose [Recovered/Resolved]
  - Seizure [Recovered/Resolved]
  - Sinus tachycardia [Recovered/Resolved]
